FAERS Safety Report 5270593-3 (Version None)
Quarter: 2007Q1

REPORT INFORMATION
  Report Type: 
  Country: None (occurrence: None)
  Receive Date: 20070315
  Receipt Date: 20070227
  Transmission Date: 20070707
  Serious: Yes (Hospitalization)
  Sender: FDA-Public Use
  Company Number: 220002N07USA

PATIENT
  Age: 10 Year
  Sex: Male
  Weight: 29.1 kg

DRUGS (6)
  1. SAIZEN [Suspect]
     Indication: GROWTH HORMONE DEFICIENCY
  2. DESMOPRESSIN [Concomitant]
  3. LEVOTHYROXINE /00068001/ [Concomitant]
  4. MONTELUKAST /01362601/ [Concomitant]
  5. FLUTICASONE PROPIONATE [Concomitant]
  6. SALBUTAMOL /00139501/ [Concomitant]

REACTIONS (2)
  - GERM CELL CANCER [None]
  - MALIGNANT PITUITARY TUMOUR [None]
